FAERS Safety Report 10481694 (Version 1)
Quarter: 2014Q3

REPORT INFORMATION
  Report Type: Spontaneous
  Country: US (occurrence: US)
  Receive Date: 20140929
  Receipt Date: 20140929
  Transmission Date: 20150326
  Serious: Yes (Other)
  Sender: FDA-Public Use
  Company Number: US-SHIRE-US201406100

PATIENT
  Sex: Female

DRUGS (2)
  1. CARBATROL [Suspect]
     Active Substance: CARBAMAZEPINE
     Dosage: 1600 MG, 1X/DAY:QD
     Route: 048
  2. CARBATROL [Suspect]
     Active Substance: CARBAMAZEPINE
     Indication: CONVULSION
     Dosage: 1200 MG, 1X/DAY:QD
     Route: 048

REACTIONS (4)
  - Convulsion [Not Recovered/Not Resolved]
  - Condition aggravated [Not Recovered/Not Resolved]
  - Anticonvulsant drug level decreased [Not Recovered/Not Resolved]
  - Drug effect decreased [Not Recovered/Not Resolved]

NARRATIVE: CASE EVENT DATE: 201310
